FAERS Safety Report 9789940 (Version 1)
Quarter: 2013Q4

REPORT INFORMATION
  Report Type: Spontaneous
  Country: NL (occurrence: None)
  Receive Date: 20131227
  Receipt Date: 20131227
  Transmission Date: 20140711
  Serious: Yes (Other)
  Sender: FDA-Public Use
  Company Number: AUR-APL-2013-10650

PATIENT
  Age: 45 Year
  Sex: Female

DRUGS (2)
  1. GABAPENTIN (GABAPENTIN) [Suspect]
     Indication: ICHTHYOSIS
     Dosage: 900 MG (300 MG, 3 IN 1 D)
     Route: 048
  2. DEVARON (COLECALCIFEROL) [Concomitant]

REACTIONS (1)
  - Laceration [None]
